FAERS Safety Report 5148963-3 (Version None)
Quarter: 2006Q4

REPORT INFORMATION
  Report Type: 
  Country: None (occurrence: None)
  Receive Date: 20061113
  Receipt Date: 20061103
  Transmission Date: 20070319
  Serious: Yes (Other)
  Sender: FDA-Public Use
  Company Number: CA-AVENTIS-200621509GDDC

PATIENT
  Age: 29 Year
  Sex: Male
  Weight: 70 kg

DRUGS (8)
  1. FLAGYL [Suspect]
     Route: 042
  2. GENTAMICIN [Suspect]
     Route: 042
  3. CIPROFLOXACIN [Suspect]
     Route: 048
  4. AMPICILLIN SODIUM [Suspect]
     Route: 042
  5. ANAESTHETICS [Concomitant]
     Route: 042
  6. ROPIVACAINE [Concomitant]
     Route: 008
  7. MORPHINE [Concomitant]
     Route: 030
  8. KETOROLAC TROMETHAMINE [Concomitant]
     Route: 030

REACTIONS (4)
  - ABDOMINAL PAIN [None]
  - DIARRHOEA [None]
  - PSEUDOMEMBRANOUS COLITIS [None]
  - PYREXIA [None]
